FAERS Safety Report 7267880-6 (Version None)
Quarter: 2011Q1

REPORT INFORMATION
  Report Type: 
  Country: None (occurrence: None)
  Receive Date: 20110201
  Receipt Date: 20110126
  Transmission Date: 20110831
  Serious: Yes (Other)
  Sender: FDA-Public Use
  Company Number: ES-ROCHE-755873

PATIENT
  Sex: Female

DRUGS (2)
  1. AVASTIN [Suspect]
     Route: 065
     Dates: start: 20100701
  2. TAXOL [Suspect]
     Route: 065
     Dates: start: 20100701

REACTIONS (2)
  - PULMONARY EMBOLISM [None]
  - MYELOID LEUKAEMIA [None]
